FAERS Safety Report 9671225 (Version 3)
Quarter: 2013Q4

REPORT INFORMATION
  Report Type: Report from Study
  Country: US (occurrence: US)
  Receive Date: 20131106
  Receipt Date: 20131113
  Transmission Date: 20140711
  Serious: Yes (Life-Threatening, Hospitalization)
  Sender: FDA-Public Use
  Company Number: US-ROCHE-1278165

PATIENT
  Sex: Female
  Weight: 49.03 kg

DRUGS (6)
  1. HERCEPTIN [Suspect]
     Indication: HER-2 POSITIVE BREAST CANCER
     Route: 042
     Dates: start: 201307, end: 201309
  2. TAXOL [Concomitant]
     Indication: HER-2 POSITIVE BREAST CANCER
     Route: 065
     Dates: start: 201307, end: 201309
  3. SYNTHROID [Concomitant]
     Indication: HYPOTHYROIDISM
     Route: 048
  4. LANTUS [Concomitant]
     Indication: DIABETES MELLITUS
     Dosage: 15-20 UNITS
     Route: 065
  5. APIDRA [Concomitant]
     Indication: DIABETES MELLITUS
     Route: 065
  6. XANAX [Concomitant]
     Dosage: NIGHTLY
     Route: 048

REACTIONS (8)
  - Fatigue [Unknown]
  - Loss of consciousness [Unknown]
  - Blood glucose increased [Unknown]
  - Convulsion [Unknown]
  - Candida infection [Unknown]
  - Dysgeusia [Unknown]
  - Malaise [Not Recovered/Not Resolved]
  - Weight decreased [Recovered/Resolved]
